FAERS Safety Report 25396246 (Version 1)
Quarter: 2025Q2

REPORT INFORMATION
  Report Type: Other
  Country: DE (occurrence: DE)
  Receive Date: 20250604
  Receipt Date: 20250604
  Transmission Date: 20250717
  Serious: Yes (Other)
  Sender: LUPIN
  Company Number: DE-LUPIN PHARMACEUTICALS INC.-2025-04369

PATIENT
  Sex: Male

DRUGS (2)
  1. QUETIAPINE [Suspect]
     Active Substance: QUETIAPINE
     Indication: Product used for unknown indication
     Route: 065
  2. ZOLPIDEM [Suspect]
     Active Substance: ZOLPIDEM TARTRATE
     Indication: Product used for unknown indication
     Route: 065

REACTIONS (3)
  - Drug dependence [Unknown]
  - Pallor [Unknown]
  - Feeling jittery [Unknown]

NARRATIVE: CASE EVENT DATE: 20250515
